FAERS Safety Report 9281788 (Version 3)
Quarter: 2013Q2

REPORT INFORMATION
  Report Type: Spontaneous
  Country: US (occurrence: US)
  Receive Date: 20130510
  Receipt Date: 20130522
  Transmission Date: 20140414
  Serious: Yes (Death, Hospitalization)
  Sender: FDA-Public Use
  Company Number: US-B.I. PHARMACEUTICALS,INC./RIDGEFIELD-2013-BI-12386BP

PATIENT
  Age: 68 Year
  Sex: Female
  Weight: 59.5 kg

DRUGS (11)
  1. PRADAXA [Suspect]
     Indication: ATRIAL FIBRILLATION
     Dosage: 300 MG
     Route: 048
     Dates: end: 201303
  2. ALLOPURINOL [Concomitant]
  3. CLARITIN [Concomitant]
  4. ENAPRIL [Concomitant]
  5. IRON [Concomitant]
  6. LASIX [Concomitant]
  7. NEXIUM [Concomitant]
  8. VALTREX [Concomitant]
  9. KCL [Concomitant]
  10. CETIRIZINE [Concomitant]
  11. LOPRESSOR [Concomitant]

REACTIONS (5)
  - Gastrointestinal haemorrhage [Fatal]
  - Cardiac failure [Recovered/Resolved]
  - Atrial fibrillation [Recovered/Resolved]
  - Renal failure [Recovered/Resolved]
  - Hyponatraemia [Recovered/Resolved]
